FAERS Safety Report 11468093 (Version 1)
Quarter: 2015Q3

REPORT INFORMATION
  Report Type: Spontaneous
  Country: US (occurrence: None)
  Receive Date: 20150904
  Receipt Date: 20150904
  Transmission Date: 20151125
  Serious: Yes (Hospitalization)
  Sender: FDA-Public Use
  Company Number: None

PATIENT
  Age: 69 Year
  Sex: Female

DRUGS (20)
  1. FENTANYL. [Concomitant]
     Active Substance: FENTANYL
  2. ASPIRIN. [Concomitant]
     Active Substance: ASPIRIN
  3. GLUCOS/CHOND [Concomitant]
  4. AMITIZA [Concomitant]
     Active Substance: LUBIPROSTONE
  5. VITAMIN B12 [Concomitant]
     Active Substance: CYANOCOBALAMIN
  6. LEVOTHYROXINE. [Concomitant]
     Active Substance: LEVOTHYROXINE
  7. VITAMIN D3 [Concomitant]
     Active Substance: CHOLECALCIFEROL
  8. AMITRIPTYLIN [Concomitant]
     Active Substance: AMITRIPTYLINE
  9. OXYCODONE [Concomitant]
     Active Substance: OXYCODONE
  10. VOTRIENT [Suspect]
     Active Substance: PAZOPANIB HYDROCHLORIDE
     Indication: RENAL DISORDER
     Route: 048
     Dates: start: 20150821, end: 20150831
  11. PROTEIN POW 80% [Concomitant]
  12. ATENOLOL. [Concomitant]
     Active Substance: ATENOLOL
  13. FURADANTIN [Concomitant]
     Active Substance: NITROFURANTOIN
  14. CULTURELLE [Concomitant]
     Active Substance: LACTOBACILLUS RHAMNOSUS
  15. COLANE [Concomitant]
  16. IRON [Concomitant]
     Active Substance: IRON
  17. BUDESONIDE. [Concomitant]
     Active Substance: BUDESONIDE
  18. LYRICA [Concomitant]
     Active Substance: PREGABALIN
  19. CENTRUM [Concomitant]
     Active Substance: VITAMINS
  20. PREDNISONE. [Concomitant]
     Active Substance: PREDNISONE

REACTIONS (2)
  - Pneumonia [None]
  - Mucosal inflammation [None]

NARRATIVE: CASE EVENT DATE: 20150831
